FAERS Safety Report 10250823 (Version 2)
Quarter: 2014Q2

REPORT INFORMATION
  Report Type: Report from Study
  Country: GB (occurrence: GB)
  Receive Date: 20140620
  Receipt Date: 20140625
  Transmission Date: 20141212
  Serious: Yes (Death, Other)
  Sender: FDA-Public Use
  Company Number: GB-ROCHE-1418737

PATIENT
  Age: 41 Year
  Sex: Female

DRUGS (8)
  1. AVASTIN [Suspect]
     Indication: BREAST CANCER METASTATIC
     Route: 065
  2. CAPECITABINE [Suspect]
     Indication: BREAST CANCER METASTATIC
     Route: 065
  3. CYCLOPHOSPHAMIDE [Concomitant]
     Dosage: FOUR COURSES
     Route: 065
  4. DOCETAXEL [Concomitant]
     Dosage: FOUR COURSES
     Route: 065
  5. PACLITAXEL [Concomitant]
  6. PREGABALIN [Concomitant]
  7. CARBOPLATIN [Concomitant]
  8. GEMCITABINE [Concomitant]

REACTIONS (10)
  - Death [Fatal]
  - Metastases to central nervous system [Unknown]
  - Neuropathy peripheral [Unknown]
  - Skin mass [Unknown]
  - Disease progression [Unknown]
  - Metastases to lung [Unknown]
  - Sinus headache [Unknown]
  - Epistaxis [Unknown]
  - Dizziness [Unknown]
  - Neck pain [Unknown]
